FAERS Safety Report 8840930 (Version 2)
Quarter: 2013Q1

REPORT INFORMATION
  Report Type: Spontaneous
  Country: TW (occurrence: TW)
  Receive Date: 20121015
  Receipt Date: 20130321
  Transmission Date: 20140127
  Serious: Yes (Death, Hospitalization)
  Sender: FDA-Public Use
  Company Number: PHHY2012TW090996

PATIENT
  Age: 70 Year
  Sex: Female

DRUGS (1)
  1. METRONIDAZOLE [Suspect]
     Indication: INFECTION PROPHYLAXIS
     Dosage: UNK

REACTIONS (8)
  - Sepsis [Fatal]
  - Organ failure [Fatal]
  - Toxic encephalopathy [Unknown]
  - Altered state of consciousness [Unknown]
  - Muscle twitching [Unknown]
  - Eye movement disorder [Unknown]
  - Nystagmus [Unknown]
  - Cerebellar syndrome [Unknown]
